FAERS Safety Report 21634692 (Version 1)
Quarter: 2022Q4

REPORT INFORMATION
  Report Type: Spontaneous
  Country: US (occurrence: US)
  Receive Date: 20221123
  Receipt Date: 20221123
  Transmission Date: 20230113
  Serious: No
  Sender: FDA-Public Use
  Company Number: US-ALXN-A202214427

PATIENT
  Sex: Male

DRUGS (2)
  1. SOLIRIS [Suspect]
     Active Substance: ECULIZUMAB
     Indication: Myasthenia gravis
     Dosage: 1200 MG, Q2W
     Route: 042
     Dates: start: 20220121
  2. SOLIRIS [Suspect]
     Active Substance: ECULIZUMAB
     Indication: Chronic inflammatory demyelinating polyradiculoneuropathy

REACTIONS (3)
  - Balance disorder [Unknown]
  - Fatigue [Unknown]
  - Asthenia [Unknown]
